FAERS Safety Report 7520542-X (Version None)
Quarter: 2011Q2

REPORT INFORMATION
  Report Type: 
  Country: None (occurrence: None)
  Receive Date: 20110602
  Receipt Date: 20110518
  Transmission Date: 20111010
  Serious: Yes (Other)
  Sender: FDA-Public Use
  Company Number: NL-AMGEN-NLDSP2011015381

PATIENT
  Age: 60 Year
  Sex: Male
  Weight: 90 kg

DRUGS (4)
  1. NPLATE [Suspect]
     Indication: IDIOPATHIC THROMBOCYTOPENIC PURPURA
     Dosage: 10 A?G/KG, QWK
     Route: 058
     Dates: start: 20091014
  2. OMEPRAZOLE [Concomitant]
     Dosage: 20 MG, QD
     Route: 048
  3. ENALAPRIL MALEATE [Concomitant]
     Dosage: 20 MG, QD
     Route: 048
  4. RAMIPRIL [Concomitant]
     Dosage: UNK UNK, QD
     Route: 048
     Dates: start: 20100223

REACTIONS (1)
  - THERAPEUTIC RESPONSE DECREASED [None]
